FAERS Safety Report 21094399 (Version 2)
Quarter: 2022Q3

REPORT INFORMATION
  Report Type: Spontaneous
  Country: US (occurrence: US)
  Receive Date: 20220718
  Receipt Date: 20220719
  Transmission Date: 20221026
  Serious: Yes (Other)
  Sender: FDA-Public Use
  Company Number: US-PFIZER INC-PV202200021762

PATIENT
  Sex: Female
  Weight: .5 kg

DRUGS (5)
  1. PRECEDEX [Suspect]
     Active Substance: DEXMEDETOMIDINE HYDROCHLORIDE
     Dosage: UNK
  2. CALCIUM GLUCONATE [Suspect]
     Active Substance: CALCIUM GLUCONATE
     Dosage: 100 MG/KG, 3X/DAY (BOLUSES OF 100 MG/KG EACH ABOUT 8 HOURS APART)
  3. SMOFLIPID [Suspect]
     Active Substance: FISH OIL\MEDIUM-CHAIN TRIGLYCERIDES\OLIVE OIL\SOYBEAN OIL
     Dosage: 2 G/KG
  4. AMINO ACIDS\CARBOHYDRATES\MINERALS\VITAMINS [Suspect]
     Active Substance: AMINO ACIDS\CARBOHYDRATES\MINERALS\VITAMINS
     Dosage: UNK
  5. INTRALIPID [Concomitant]
     Active Substance: EGG PHOSPHOLIPIDS\GLYCERIN\SOYBEAN OIL
     Dosage: 1 G/KG ON DOL 1 ALONG WITH A D12.5% INFUSION

REACTIONS (3)
  - Vascular device occlusion [Unknown]
  - Hypoglycaemia [Unknown]
  - Off label use [Unknown]
